FAERS Safety Report 7677567-3 (Version None)
Quarter: 2011Q3

REPORT INFORMATION
  Report Type: 
  Country: None (occurrence: None)
  Receive Date: 20110811
  Receipt Date: 20110811
  Transmission Date: 20111222
  Serious: Yes (Hospitalization)
  Sender: FDA-Public Use
  Company Number: None

PATIENT
  Age: 64 Year
  Sex: Female
  Weight: 63.049 kg

DRUGS (19)
  1. TACROLIMUS [Concomitant]
     Route: 048
  2. CELLCEPT [Concomitant]
     Route: 048
  3. METOPROLOL TARTRATE [Concomitant]
     Route: 048
  4. VITAMIN D [Concomitant]
     Route: 048
  5. VENOFER [Suspect]
     Indication: IRON DEFICIENCY ANAEMIA
     Dosage: 400 MG
     Route: 041
     Dates: start: 20110804, end: 20110804
  6. VENOFER [Suspect]
     Indication: RENAL FAILURE CHRONIC
     Dosage: 400 MG
     Route: 041
     Dates: start: 20110804, end: 20110804
  7. ARANESP -ALBUMIN FREE- SOLN -DARBEPOETIN ALFA-POLYSORBATE SOLN [Concomitant]
  8. SIMVASTATIN [Concomitant]
     Route: 048
  9. LEVOTHYROXINE SODIUM [Concomitant]
     Route: 048
  10. ESTRADIOL [Concomitant]
     Route: 048
  11. ANUSOL HC [Concomitant]
     Route: 054
  12. AMLODIPINE BESYLATE [Concomitant]
     Route: 048
  13. PREDNISONE [Concomitant]
     Route: 048
  14. CELEXA [Concomitant]
  15. COZAAR [Concomitant]
     Route: 048
  16. BACTRIM 400-80 MG [Concomitant]
     Route: 048
  17. AMOXICILLIN [Concomitant]
     Route: 048
  18. STRESS TAB [Concomitant]
     Route: 048
  19. PROGRAF [Concomitant]
     Route: 048

REACTIONS (6)
  - INCONTINENCE [None]
  - NAUSEA [None]
  - OEDEMA PERIPHERAL [None]
  - INFUSION RELATED REACTION [None]
  - BACK PAIN [None]
  - BLOOD PRESSURE DECREASED [None]
